FAERS Safety Report 17584039 (Version 1)
Quarter: 2020Q1

REPORT INFORMATION
  Report Type: Spontaneous
  Country: US (occurrence: US)
  Receive Date: 20200326
  Receipt Date: 20200326
  Transmission Date: 20200409
  Serious: Yes (Life-Threatening, Hospitalization, Other)
  Sender: FDA-Public Use
  Company Number: US-NOVOPROD-718596

PATIENT
  Age: 45 Year
  Sex: Female

DRUGS (4)
  1. ESTRADIOL. [Suspect]
     Active Substance: ESTRADIOL
     Indication: IN VITRO FERTILISATION
     Dosage: TOTAL STIMULATION TIME WAS 3 WEEKS OF UNOPPOSED ESTRADIOL
     Route: 048
  2. VAGIFEM [Suspect]
     Active Substance: ESTRADIOL
     Indication: IN VITRO FERTILISATION
     Dosage: TOTAL STIMULATION TIME WAS 3 WEEKS OF UNOPPOSED ESTRADIOL
     Route: 067
  3. PROGESTERONE. [Suspect]
     Active Substance: PROGESTERONE
     Indication: IN VITRO FERTILISATION
     Dosage: INTRAMUSCULAR PROGESTERONE IN OIL
     Route: 030
  4. LEUPRORELIN [Suspect]
     Active Substance: LEUPROLIDE ACETATE
     Indication: HORMONE SUPPRESSION THERAPY
     Dosage: DURATION OF ADMINISTRATION: 3 WEEKS
     Route: 065

REACTIONS (2)
  - Off label use [Unknown]
  - Endometrial stromal sarcoma [Unknown]
